FAERS Safety Report 6675309-1 (Version None)
Quarter: 2010Q2

REPORT INFORMATION
  Report Type: 
  Country: None (occurrence: None)
  Receive Date: 20100409
  Receipt Date: 20100127
  Transmission Date: 20101027
  Serious: No
  Sender: FDA-Public Use
  Company Number: A0841677A

PATIENT
  Age: 54 Year
  Sex: Female

DRUGS (5)
  1. TYKERB [Suspect]
     Indication: BREAST CANCER
     Dosage: 1000MG PER DAY
     Route: 048
     Dates: start: 20090501
  2. HERCEPTIN [Concomitant]
  3. UNKNOWN BLOOD PRESSURE MEDICATION [Concomitant]
  4. INSULIN [Concomitant]
  5. DIABETES MEDICATION [Concomitant]

REACTIONS (5)
  - DIARRHOEA [None]
  - ERYTHEMA [None]
  - HAEMORRHOIDS [None]
  - MUSCULOSKELETAL PAIN [None]
  - POLLAKIURIA [None]
